FAERS Safety Report 15208235 (Version 1)
Quarter: 2018Q3

REPORT INFORMATION
  Report Type: Spontaneous
  Country: IE (occurrence: IE)
  Receive Date: 20180727
  Receipt Date: 20180727
  Transmission Date: 20181010
  Serious: Yes (Other)
  Sender: FDA-Public Use
  Company Number: IE-TEVA-2018-IE-930303

PATIENT
  Age: 58 Year
  Sex: Male

DRUGS (4)
  1. SEPTRIN 80MG/400MG TABLETS [Concomitant]
     Route: 048
  2. CIPLOX [Suspect]
     Active Substance: CIPROFLOXACIN HYDROCHLORIDE
     Indication: URINARY TRACT INFECTION
     Dosage: 500 MILLIGRAM DAILY; 1 TABLET TAKEN
     Route: 048
     Dates: start: 20180621, end: 20180621
  3. DELTACORTRIL ENTERIC [Concomitant]
     Route: 048
  4. AZITHROMYCIN (GENERIC) [Concomitant]
     Dosage: ONE EVERY OTHER DAY
     Route: 048

REACTIONS (2)
  - Gait inability [Not Recovered/Not Resolved]
  - Tendon rupture [Not Recovered/Not Resolved]

NARRATIVE: CASE EVENT DATE: 20180621
